FAERS Safety Report 24731284 (Version 4)
Quarter: 2025Q3

REPORT INFORMATION
  Report Type: Report from Study
  Country: CA (occurrence: CA)
  Receive Date: 20241213
  Receipt Date: 20250709
  Transmission Date: 20251021
  Serious: Yes (Death)
  Sender: CSL BEHRING
  Company Number: CA-BEH-2024187230

PATIENT
  Age: 69 Year
  Sex: Female

DRUGS (1)
  1. VELTASSA [Suspect]
     Active Substance: PATIROMER
     Indication: Hyperkalaemia
     Dosage: 8.4 G, QD FOR 4 MONTHS
     Route: 048
     Dates: start: 20240513

REACTIONS (2)
  - Death [Fatal]
  - Blood potassium decreased [Fatal]

NARRATIVE: CASE EVENT DATE: 20240101
